FAERS Safety Report 6138876-2 (Version None)
Quarter: 2009Q1

REPORT INFORMATION
  Report Type: 
  Country: None (occurrence: None)
  Receive Date: 20090331
  Receipt Date: 20090323
  Transmission Date: 20090719
  Serious: No
  Sender: FDA-Public Use
  Company Number: US-B.I. PHARMACEUTICALS,INC./RIDGEFIELD-2009-BP-03654BP

PATIENT
  Age: 73 Year
  Sex: Female

DRUGS (4)
  1. SPIRIVA [Suspect]
     Dosage: 18MCG
     Route: 055
     Dates: start: 20060101
  2. ADVAIR HFA [Concomitant]
     Indication: BRONCHIECTASIS
  3. SINGULAIR [Concomitant]
     Indication: BRONCHIECTASIS
  4. ALBUTEROL [Concomitant]
     Indication: BRONCHIECTASIS

REACTIONS (3)
  - CHEST DISCOMFORT [None]
  - DYSPNOEA [None]
  - OROPHARYNGEAL PAIN [None]
